FAERS Safety Report 9514330 (Version 2)
Quarter: 2013Q4

REPORT INFORMATION
  Report Type: Spontaneous
  Country: US (occurrence: US)
  Receive Date: 20130911
  Receipt Date: 20131012
  Transmission Date: 20140711
  Serious: Yes (Other)
  Sender: FDA-Public Use
  Company Number: US-JNJFOC-20130901142

PATIENT
  Sex: Male

DRUGS (3)
  1. MOTRIN [Suspect]
     Route: 065
  2. MOTRIN [Suspect]
     Indication: PAIN
     Dosage: 2-3 TIMES.
     Route: 065
  3. FLECTOR PATCHES [Suspect]
     Indication: ROTATOR CUFF SYNDROME
     Route: 062
     Dates: start: 2013

REACTIONS (12)
  - Vision blurred [Unknown]
  - Feeling abnormal [Unknown]
  - Vomiting [Unknown]
  - Memory impairment [Unknown]
  - Night sweats [Unknown]
  - Dizziness [Unknown]
  - Somnolence [Unknown]
  - Confusional state [Unknown]
  - Headache [Unknown]
  - Nausea [Unknown]
  - Product quality issue [Unknown]
  - Drug ineffective [Unknown]
